FAERS Safety Report 6177156-6 (Version None)
Quarter: 2009Q2

REPORT INFORMATION
  Report Type: 
  Country: None (occurrence: None)
  Receive Date: 20090504
  Receipt Date: 20090424
  Transmission Date: 20091009
  Serious: Yes (Other)
  Sender: FDA-Public Use
  Company Number: US-PFIZER INC-2005018705

PATIENT
  Sex: Female
  Weight: 81 kg

DRUGS (6)
  1. PROVERA [Suspect]
     Indication: HORMONE REPLACEMENT THERAPY
     Dosage: 5 MG, 1X/DAY
     Route: 048
     Dates: start: 19970201, end: 19980801
  2. PROVERA [Suspect]
     Route: 065
     Dates: start: 20001201, end: 20010301
  3. PREMARIN [Suspect]
     Indication: HORMONE REPLACEMENT THERAPY
     Dosage: 0.625 MG, 1X/DAY
     Dates: start: 19970201, end: 19980801
  4. PREMPRO [Suspect]
     Indication: HORMONE REPLACEMENT THERAPY
     Dosage: UNK
     Dates: start: 19980801, end: 20001201
  5. PREMPRO [Suspect]
     Route: 065
     Dates: start: 20010301, end: 20030102
  6. ESTRATEST H.S. [Suspect]
     Indication: HORMONE REPLACEMENT THERAPY
     Route: 065
     Dates: start: 20001201, end: 20010301

REACTIONS (1)
  - BREAST CANCER STAGE II [None]
